FAERS Safety Report 23960591 (Version 2)
Quarter: 2025Q4

REPORT INFORMATION
  Report Type: Spontaneous
  Country: EU (occurrence: EU)
  Receive Date: 20240611
  Receipt Date: 20251204
  Transmission Date: 20260117
  Serious: Yes (Other)
  Sender: RANBAXY
  Company Number: EU-EMA-DD-20171226-vsevhpdd-114403

PATIENT
  Age: 44 Year
  Sex: Female

DRUGS (1)
  1. PREGABALIN [Suspect]
     Active Substance: PREGABALIN
     Indication: Diabetic neuropathy
     Dosage: UNK
     Route: 065

REACTIONS (3)
  - Photophobia [Recovered/Resolved]
  - Chromatopsia [Recovered/Resolved]
  - Tunnel vision [Recovered/Resolved]
